FAERS Safety Report 6057618-2 (Version None)
Quarter: 2009Q1

REPORT INFORMATION
  Report Type: 
  Country: None (occurrence: None)
  Receive Date: 20090129
  Receipt Date: 20080725
  Transmission Date: 20090719
  Serious: No
  Sender: FDA-Public Use
  Company Number: US-BAUSCH-2008BL003265

PATIENT
  Age: 38 Year
  Sex: Female

DRUGS (3)
  1. DESMOPRESSIN ACETATE [Suspect]
     Indication: SPINAL CORD INJURY
     Route: 045
     Dates: start: 20080707, end: 20080722
  2. DESMOPRESSIN ACETATE [Suspect]
     Route: 045
     Dates: start: 20080707, end: 20080722
  3. VESICARE [Concomitant]
     Indication: BLADDER SPASM
     Route: 048
     Dates: start: 20080301

REACTIONS (1)
  - DRUG INEFFECTIVE [None]
